FAERS Safety Report 16513758 (Version 1)
Quarter: 2019Q3

REPORT INFORMATION
  Report Type: Spontaneous
  Country: FR (occurrence: FR)
  Receive Date: 20190702
  Receipt Date: 20190702
  Transmission Date: 20191004
  Serious: Yes (Other)
  Sender: FDA-Public Use
  Company Number: FR-PFIZER INC-2019274655

PATIENT
  Age: 53 Year
  Sex: Female

DRUGS (5)
  1. NEUPRO [Concomitant]
     Active Substance: ROTIGOTINE
     Dosage: UNK, 1X/DAY
  2. GABAPENTIN. [Suspect]
     Active Substance: GABAPENTIN
     Dosage: UNK
  3. GABAPENTIN. [Suspect]
     Active Substance: GABAPENTIN
     Dosage: 600MG ONLY IN THE EVENING
     Route: 065
  4. GABAPENTINE ZENTIVA [Suspect]
     Active Substance: GABAPENTIN
     Indication: RESTLESS LEGS SYNDROME
     Dosage: 2 DF, 1X/DAY IN THE EVENING
     Route: 065
  5. GABAPENTIN. [Suspect]
     Active Substance: GABAPENTIN
     Indication: RESTLESS LEGS SYNDROME
     Dosage: 2 DF, 1X/DAY AT NOON
     Route: 065

REACTIONS (3)
  - Product use in unapproved indication [Unknown]
  - Off label use [Unknown]
  - Haemorrhage [Unknown]
